FAERS Safety Report 18078592 (Version 2)
Quarter: 2020Q3

REPORT INFORMATION
  Report Type: Spontaneous
  Country: US (occurrence: US)
  Receive Date: 20200728
  Receipt Date: 20200807
  Transmission Date: 20201103
  Serious: Yes (Other)
  Sender: FDA-Public Use
  Company Number: US-DRREDDYS-USA/USA/20/0125432

PATIENT
  Age: 4 Year
  Sex: Male

DRUGS (8)
  1. INTERFERON GAMMA NOS [Concomitant]
     Active Substance: INTERFERON GAMMA
     Dosage: AFTER 1 YEAR
     Route: 058
  2. FLUCONAZOLE. [Suspect]
     Active Substance: FLUCONAZOLE
     Indication: DISSEMINATED COCCIDIOIDOMYCOSIS
  3. POSACONAZOLE [Suspect]
     Active Substance: POSACONAZOLE
     Indication: DISSEMINATED COCCIDIOIDOMYCOSIS
     Route: 065
  4. INTERFERON GAMMA NOS [Concomitant]
     Active Substance: INTERFERON GAMMA
     Indication: DISSEMINATED COCCIDIOIDOMYCOSIS
     Route: 058
  5. SERTRALINE [Suspect]
     Active Substance: SERTRALINE HYDROCHLORIDE
     Indication: DISSEMINATED COCCIDIOIDOMYCOSIS
     Route: 065
  6. AMPHOTERICIN B, LIPOSOME [Suspect]
     Active Substance: AMPHOTERICIN B
  7. AMPHOTERICIN B, LIPOSOME [Suspect]
     Active Substance: AMPHOTERICIN B
     Indication: DISSEMINATED COCCIDIOIDOMYCOSIS
     Dosage: 7.5 MG PER KILOGRAM OF BODY WEIGHT
     Route: 065
  8. INTERFERON GAMMA NOS [Concomitant]
     Active Substance: INTERFERON GAMMA
     Route: 058

REACTIONS (1)
  - Drug ineffective [Unknown]
